FAERS Safety Report 14509102 (Version 1)
Quarter: 2018Q1

REPORT INFORMATION
  Report Type: Spontaneous
  Country: US (occurrence: US)
  Receive Date: 20180209
  Receipt Date: 20180209
  Transmission Date: 20180509
  Serious: No
  Sender: FDA-Public Use
  Company Number: US-BRISTOL-MYERS SQUIBB COMPANY-BMS-2018-006438

PATIENT
  Age: 50 Year
  Sex: Male

DRUGS (3)
  1. DESOXIMETASONE. [Suspect]
     Active Substance: DESOXIMETASONE
     Indication: SYSTEMIC LUPUS ERYTHEMATOSUS
     Dosage: UNK, BID
     Route: 061
  2. HYDROXYCHLOROQUINE [Concomitant]
     Active Substance: HYDROXYCHLOROQUINE
     Indication: SYSTEMIC LUPUS ERYTHEMATOSUS
     Route: 065
  3. TRIAMCINOLONE ACETONIDE. [Suspect]
     Active Substance: TRIAMCINOLONE ACETONIDE
     Indication: SYSTEMIC LUPUS ERYTHEMATOSUS
     Route: 026

REACTIONS (5)
  - Infection reactivation [Unknown]
  - Paraesthesia [Unknown]
  - Incorrect route of drug administration [Unknown]
  - Herpes zoster [Not Recovered/Not Resolved]
  - Rash erythematous [Recovered/Resolved]
